FAERS Safety Report 15518003 (Version 1)
Quarter: 2018Q4

REPORT INFORMATION
  Report Type: Spontaneous
  Country: IL (occurrence: IL)
  Receive Date: 20181017
  Receipt Date: 20181017
  Transmission Date: 20190205
  Serious: Yes (Hospitalization)
  Sender: FDA-Public Use
  Company Number: IL-PFIZER INC-2018419779

PATIENT
  Age: 50 Year
  Sex: Female

DRUGS (2)
  1. FUSID [FUROSEMIDE] [Suspect]
     Active Substance: FUROSEMIDE
     Indication: POLYURIA
  2. ALDACTONE [Suspect]
     Active Substance: SPIRONOLACTONE
     Indication: POLYURIA

REACTIONS (1)
  - Blood creatinine increased [Unknown]
